FAERS Safety Report 6847759-1 (Version None)
Quarter: 2010Q3

REPORT INFORMATION
  Report Type: 
  Country: None (occurrence: None)
  Receive Date: 20100716
  Receipt Date: 20100706
  Transmission Date: 20110219
  Serious: Yes (Other)
  Sender: FDA-Public Use
  Company Number: JP-AMGEN-KDC414007

PATIENT
  Sex: Female

DRUGS (6)
  1. DENOSUMAB [Suspect]
     Indication: METASTASES TO BONE
     Dates: start: 20090701
  2. XELODA [Concomitant]
     Dates: start: 20090508
  3. KENALOG [Concomitant]
     Dates: start: 20070608, end: 20100217
  4. ISODINE GARGLE [Concomitant]
     Dates: start: 20071019
  5. LOXONIN [Concomitant]
     Dates: start: 20090107
  6. VOLTAREN [Concomitant]
     Dates: start: 20090527

REACTIONS (1)
  - PAIN IN JAW [None]
